FAERS Safety Report 7816877-3 (Version None)
Quarter: 2011Q4

REPORT INFORMATION
  Report Type: 
  Country: None (occurrence: None)
  Receive Date: 20111017
  Receipt Date: 20110920
  Transmission Date: 20120403
  Serious: Yes (Death, Hospitalization)
  Sender: FDA-Public Use
  Company Number: BE-GENZYME-CAMP-1000093

PATIENT
  Sex: Female
  Weight: 37.4 kg

DRUGS (21)
  1. VOLTAREN [Concomitant]
     Indication: PAIN
     Dosage: 150 MG, QD
     Route: 065
     Dates: start: 20090116
  2. ACETAMINOPHEN [Concomitant]
     Indication: PAIN
     Dosage: 1 G, 4X/DAY
     Route: 048
     Dates: start: 20090224
  3. TRIBVIC [Concomitant]
     Indication: PRODUCT USED FOR UNKNOWN INDICATION
  4. XALATAN [Concomitant]
     Indication: GLAUCOMA
     Dosage: UNK
     Dates: start: 20010322
  5. LAXOBERON [Concomitant]
     Indication: LAXATIVE SUPPORTIVE CARE
     Dosage: 75 MG, QD
     Route: 048
     Dates: start: 20090218
  6. D-CURE [Concomitant]
     Indication: OSTEOPENIA
     Dosage: 1 ML, Q/28 DAYS
     Dates: start: 20090203
  7. MINOXIDIL [Concomitant]
     Indication: ALOPECIA
     Dosage: UNK
     Dates: start: 19950101
  8. OXYCONTIN [Concomitant]
     Dosage: 80 MG, BID
     Route: 048
  9. CLIMEN [Concomitant]
     Indication: ALOPECIA
     Dosage: UNK
     Dates: start: 19950101
  10. ANDROCUR [Concomitant]
     Indication: ALOPECIA
     Dosage: UNK
     Dates: start: 19950101
  11. DEANXIT [Concomitant]
     Indication: PRODUCT USED FOR UNKNOWN INDICATION
     Dosage: UNK
     Dates: start: 20020101
  12. OXYCONTIN [Concomitant]
     Indication: PRODUCT USED FOR UNKNOWN INDICATION
     Dosage: 40 MG, BID
     Route: 048
  13. OXYCONTIN [Concomitant]
     Indication: PAIN
     Dosage: 40 MG, UNK
     Route: 048
     Dates: start: 20090209
  14. CALCIUM SANDOZ [Concomitant]
     Indication: HYPOCALCAEMIA
     Dosage: 500 MG, BID
     Dates: start: 20090204
  15. CAMPATH [Suspect]
     Indication: CHRONIC LYMPHOCYTIC LEUKAEMIA
     Dosage: 30 MG, TIW
     Route: 058
     Dates: start: 20071022, end: 20080222
  16. MORPHINE [Concomitant]
     Indication: PAIN
     Dosage: 0.25 MG/ML, PRN
     Route: 042
  17. OMEPRAZOLE [Concomitant]
     Indication: PROPHYLAXIS AGAINST GASTROINTESTINAL ULCER
     Dosage: 20 MG, QD
     Route: 048
     Dates: start: 20090117
  18. ARTCOPTIC [Concomitant]
     Indication: PRODUCT USED FOR UNKNOWN INDICATION
     Dosage: UNK
  19. ATROPTIC [Concomitant]
     Indication: GLAUCOMA
     Dosage: UNK
     Dates: start: 20010322
  20. REDOMEX [Concomitant]
     Indication: ANTIDEPRESSANT THERAPY
     Dosage: 75 MG, QD
     Dates: start: 20090220
  21. DAPSONE [Concomitant]
     Indication: PROPHYLAXIS
     Dosage: 50 MG, BID
     Dates: start: 20090210

REACTIONS (5)
  - INFECTION [None]
  - GENERAL PHYSICAL HEALTH DETERIORATION [None]
  - DECREASED APPETITE [None]
  - ARTHRALGIA [None]
  - PNEUMONIA [None]
